FAERS Safety Report 4562789-0 (Version None)
Quarter: 2005Q1

REPORT INFORMATION
  Report Type: 
  Country: None (occurrence: None)
  Receive Date: 20050121
  Receipt Date: 20050110
  Transmission Date: 20050727
  Serious: Yes (Death, Life-Threatening)
  Sender: FDA-Public Use
  Company Number: 2005004417

PATIENT
  Age: 49 Year
  Sex: Female

DRUGS (1)
  1. SULPERAZON (SULBACTAM, CEFOPERAZONE) [Suspect]
     Indication: INFECTION PROPHYLAXIS
     Dosage: 6 GRAM (3 GRAM, 2 IN 1)
     Dates: start: 20041216, end: 20050102

REACTIONS (6)
  - BONE MARROW DEPRESSION [None]
  - CARDIAC ARREST [None]
  - HAEMORRHAGE INTRACRANIAL [None]
  - INFECTION [None]
  - RESPIRATORY ARREST [None]
  - RESPIRATORY FAILURE [None]
